FAERS Safety Report 7247343-4 (Version None)
Quarter: 2011Q1

REPORT INFORMATION
  Report Type: 
  Country: None (occurrence: None)
  Receive Date: 20110127
  Receipt Date: 20110119
  Transmission Date: 20110831
  Serious: Yes (Other)
  Sender: FDA-Public Use
  Company Number: JP-PFIZER INC-2011013442

PATIENT
  Age: 11 Year
  Sex: Male

DRUGS (3)
  1. POTASSIUM BROMIDE [Concomitant]
     Indication: EPILEPSY
     Route: 048
  2. ZONISAMIDE [Concomitant]
     Indication: EPILEPSY
     Route: 048
  3. GABAPENTIN [Suspect]
     Indication: EPILEPSY
     Dosage: UNK
     Route: 048

REACTIONS (2)
  - SUBCUTANEOUS ABSCESS [None]
  - BLOOD IMMUNOGLOBULIN A DECREASED [None]
